FAERS Safety Report 9432320 (Version 1)
Quarter: 2013Q3

REPORT INFORMATION
  Report Type: Spontaneous
  Country: US (occurrence: None)
  Receive Date: 20130730
  Receipt Date: 20130730
  Transmission Date: 20140515
  Serious: No
  Sender: FDA-Public Use
  Company Number: None

PATIENT
  Age: 72 Year
  Sex: Female
  Weight: 79.38 kg

DRUGS (1)
  1. LOSARTAN POTASSIUM [Suspect]
     Indication: HYPERTENSION
     Dosage: 1, ONCE A DAY, MOUTH
     Route: 048
     Dates: start: 20130220, end: 20130425

REACTIONS (8)
  - Headache [None]
  - Dizziness [None]
  - Heart rate increased [None]
  - Abdominal pain upper [None]
  - Diarrhoea [None]
  - Product substitution issue [None]
  - Product quality issue [None]
  - Heart rate abnormal [None]
